FAERS Safety Report 4812963-0 (Version None)
Quarter: 2005Q4

REPORT INFORMATION
  Report Type: 
  Country: None (occurrence: None)
  Receive Date: 20051028
  Receipt Date: 20050524
  Transmission Date: 20060501
  Serious: No
  Sender: FDA-Public Use
  Company Number: US-GLAXOSMITHKLINE-A0559936A

PATIENT
  Age: 80 Year
  Sex: Female

DRUGS (9)
  1. ADVAIR DISKUS 100/50 [Suspect]
     Indication: ASTHMA
     Dosage: 1PUFF TWICE PER DAY
     Route: 055
  2. HYZAAR [Concomitant]
  3. PLAVIX [Concomitant]
  4. FOLTX [Concomitant]
  5. POTASSIUM CHLORIDE [Concomitant]
  6. ECOTRIN [Concomitant]
  7. ZYRTEC [Concomitant]
  8. VERAPAMIL [Concomitant]
  9. SINGULAIR [Concomitant]

REACTIONS (3)
  - DRUG INEFFECTIVE [None]
  - DYSPNOEA [None]
  - PHARMACEUTICAL PRODUCT COMPLAINT [None]
